FAERS Safety Report 5765069-0 (Version None)
Quarter: 2008Q2

REPORT INFORMATION
  Report Type: 
  Country: None (occurrence: None)
  Receive Date: 20080606
  Receipt Date: 20080606
  Transmission Date: 20081010
  Serious: No
  Sender: FDA-Public Use
  Company Number: None

PATIENT
  Sex: Male

DRUGS (1)
  1. SOTALOL HCL [Suspect]
     Dosage: 120 MG TWICE DAILY ORAL
     Route: 048
     Dates: start: 20080212

REACTIONS (6)
  - BURNING SENSATION [None]
  - ERYTHEMA [None]
  - FLUSHING [None]
  - FORMICATION [None]
  - PARAESTHESIA [None]
  - PRURITUS [None]
